FAERS Safety Report 15848614 (Version 1)
Quarter: 2019Q1

REPORT INFORMATION
  Report Type: Spontaneous
  Country: US (occurrence: US)
  Receive Date: 20190121
  Receipt Date: 20190121
  Transmission Date: 20190417
  Serious: No
  Sender: FDA-Public Use
  Company Number: US-US WORLDMEDS, LLC-USW201810-001550

PATIENT
  Age: 80 Year
  Sex: Male

DRUGS (3)
  1. XADAGO [Suspect]
     Active Substance: SAFINAMIDE MESYLATE
     Indication: PARKINSON^S DISEASE
     Dates: start: 20180808, end: 20180821
  2. XADAGO [Suspect]
     Active Substance: SAFINAMIDE MESYLATE
     Dates: start: 20180822, end: 201809
  3. XADAGO [Suspect]
     Active Substance: SAFINAMIDE MESYLATE
     Dates: start: 20180918, end: 20180919

REACTIONS (2)
  - Drug ineffective [Unknown]
  - Hallucination [Not Recovered/Not Resolved]
